FAERS Safety Report 19087127 (Version 1)
Quarter: 2021Q2

REPORT INFORMATION
  Report Type: Spontaneous
  Country: RU (occurrence: RU)
  Receive Date: 20210402
  Receipt Date: 20210402
  Transmission Date: 20210717
  Serious: Yes (Other)
  Sender: FDA-Public Use
  Company Number: RU-AMGEN-RUSSP2021047427

PATIENT

DRUGS (4)
  1. CALCIUM + MAGNESIUM + ZINK [Concomitant]
  2. CALCIUM [Concomitant]
     Active Substance: CALCIUM
  3. PROLIA [Suspect]
     Active Substance: DENOSUMAB
     Indication: SENILE OSTEOPOROSIS
     Dosage: 60 MILLIGRAM PER MILLILITRE, Q6MO
     Route: 065
  4. VITAMIN K2 [MENAQUINONE] [Concomitant]
     Active Substance: MENAQUINONE 6

REACTIONS (10)
  - Vitamin D deficiency [Unknown]
  - Radius fracture [Unknown]
  - Ankle fracture [Unknown]
  - Fall [Unknown]
  - Hypocalcaemia [Unknown]
  - Cerebrovascular disorder [Unknown]
  - Myocardial infarction [Unknown]
  - Hand fracture [Unknown]
  - Accident at home [Unknown]
  - Off label use [Unknown]
